FAERS Safety Report 8614770-X (Version None)
Quarter: 2012Q3

REPORT INFORMATION
  Report Type: 
  Country: None (occurrence: None)
  Receive Date: 20120823
  Receipt Date: 20120817
  Transmission Date: 20120928
  Serious: Yes (Hospitalization, Other)
  Sender: FDA-Public Use
  Company Number: US-PFIZER INC-2012202372

PATIENT
  Age: 72 Year
  Sex: Male
  Weight: 72.562 kg

DRUGS (3)
  1. ADVAIR DISKUS 100/50 [Concomitant]
     Indication: DYSPNOEA
     Dosage: TWO PUFFS DAILY
  2. ARMODAFINIL [Suspect]
     Indication: MENINGITIS COCCIDIOIDES
     Dosage: 600 MG, 1X/DAY
     Dates: end: 20120721
  3. NASONEX [Concomitant]
     Dosage: UNK

REACTIONS (4)
  - DERMATITIS ALLERGIC [None]
  - KNEE ARTHROPLASTY [None]
  - DRY MOUTH [None]
  - CHAPPED LIPS [None]
